FAERS Safety Report 15688623 (Version 1)
Quarter: 2018Q4

REPORT INFORMATION
  Report Type: Spontaneous
  Country: RU (occurrence: US)
  Receive Date: 20181205
  Receipt Date: 20181205
  Transmission Date: 20190205
  Serious: Yes (Life-Threatening, Other)
  Sender: FDA-Public Use
  Company Number: RU-ACCORD-094665

PATIENT
  Age: 55 Year
  Sex: Male

DRUGS (8)
  1. LOSARTAN. [Concomitant]
     Active Substance: LOSARTAN
  2. ACETYLSALICYLIC ACID [Concomitant]
     Active Substance: ASPIRIN
     Indication: ANTICOAGULANT THERAPY
  3. OMEPRAZOLE. [Interacting]
     Active Substance: OMEPRAZOLE
     Indication: PRODUCT USED FOR UNKNOWN INDICATION
  4. CLOPIDOGREL [Suspect]
     Active Substance: CLOPIDOGREL BISULFATE
     Indication: ANTICOAGULANT THERAPY
     Dates: start: 2015
  5. VILDAGLIPTIN [Concomitant]
     Active Substance: VILDAGLIPTIN
  6. EZETIMIBE. [Concomitant]
     Active Substance: EZETIMIBE
  7. INDAPAMIDE. [Concomitant]
     Active Substance: INDAPAMIDE
  8. SOTALOL. [Concomitant]
     Active Substance: SOTALOL

REACTIONS (2)
  - Drug interaction [Unknown]
  - Drug ineffective [Unknown]
